FAERS Safety Report 19351863 (Version 1)
Quarter: 2021Q2

REPORT INFORMATION
  Report Type: Spontaneous
  Country: SE (occurrence: SE)
  Receive Date: 20210601
  Receipt Date: 20210601
  Transmission Date: 20210717
  Serious: Yes (Other)
  Sender: FDA-Public Use
  Company Number: SE-PFM-2021-05298

PATIENT

DRUGS (4)
  1. RIFAXIMIN. [Concomitant]
     Active Substance: RIFAXIMIN
     Indication: ANTIBIOTIC THERAPY
     Dosage: HIGH DOSE
     Route: 065
  2. LACTULOSE. [Concomitant]
     Active Substance: LACTULOSE
     Indication: ANTIBIOTIC THERAPY
     Dosage: HIGH DOSE
     Route: 065
  3. PROPRANOLOL [Suspect]
     Active Substance: PROPRANOLOL HYDROCHLORIDE
     Indication: PROPHYLAXIS
     Dosage: 10 MG, 12 HOURS
     Route: 065
  4. PROPRANOLOL [Suspect]
     Active Substance: PROPRANOLOL HYDROCHLORIDE
     Indication: OFF LABEL USE

REACTIONS (5)
  - Hallucination, visual [Recovered/Resolved]
  - Hallucination, auditory [Recovered/Resolved]
  - Product use in unapproved indication [Unknown]
  - Product use issue [Unknown]
  - Off label use [Unknown]
